FAERS Safety Report 12494168 (Version 2)
Quarter: 2016Q2

REPORT INFORMATION
  Report Type: Spontaneous
  Country: FR (occurrence: FR)
  Receive Date: 20160623
  Receipt Date: 20160630
  Transmission Date: 20160815
  Serious: Yes (Life-Threatening, Hospitalization, Other)
  Sender: FDA-Public Use
  Company Number: FR-GILEAD-2015-0154901

PATIENT
  Age: 47 Year
  Sex: Male
  Weight: 70 kg

DRUGS (6)
  1. TRUVADA [Suspect]
     Active Substance: EMTRICITABINE\TENOFOVIR DISOPROXIL FUMARATE
     Indication: PROPHYLAXIS AGAINST HIV INFECTION
     Dosage: 1 DF, QD
     Route: 048
     Dates: start: 20150321, end: 20150407
  2. LIPANTHYL NT [Concomitant]
     Indication: HYPERCHOLESTEROLAEMIA
     Dosage: UNK
     Route: 048
     Dates: start: 2005
  3. LIPANTHYL NT [Concomitant]
     Indication: DYSLIPIDAEMIA
  4. NORVIR [Interacting]
     Active Substance: RITONAVIR
     Indication: PROPHYLAXIS AGAINST HIV INFECTION
     Dosage: UNK
     Route: 048
     Dates: start: 20150321, end: 20150407
  5. PREZISTA [Interacting]
     Active Substance: DARUNAVIR ETHANOLATE
     Indication: PROPHYLAXIS AGAINST HIV INFECTION
     Dosage: UNK
     Route: 048
     Dates: start: 20150321, end: 20150407
  6. ASPIRIN                            /00002701/ [Concomitant]
     Active Substance: ASPIRIN
     Route: 065

REACTIONS (5)
  - Acute kidney injury [Recovering/Resolving]
  - Renal tubular necrosis [Unknown]
  - Off label use [Recovered/Resolved]
  - Drug interaction [Unknown]
  - Fanconi syndrome acquired [Not Recovered/Not Resolved]

NARRATIVE: CASE EVENT DATE: 20150402
